FAERS Safety Report 6266984-4 (Version None)
Quarter: 2009Q3

REPORT INFORMATION
  Report Type: 
  Country: None (occurrence: None)
  Receive Date: 20090714
  Receipt Date: 20090629
  Transmission Date: 20100115
  Serious: Yes (Other)
  Sender: FDA-Public Use
  Company Number: PHHY2009US14970

PATIENT
  Age: 73 Year
  Sex: Female

DRUGS (5)
  1. ZOLEDRONIC ACID [Suspect]
     Indication: METASTATIC NEOPLASM
     Dosage: 0.5 MG, UNK
  2. AREDIA [Suspect]
     Indication: BREAST CANCER METASTATIC
     Dosage: 0.5 MG, UNK
  3. AMOXICILLIN [Concomitant]
     Dosage: 2 G, UNK
  4. AMOXICILLIN [Concomitant]
     Dosage: 500 MG, BID
  5. TYLENOL [Concomitant]
     Indication: PAIN
     Dosage: UNK

REACTIONS (9)
  - ALVEOLAR OSTEITIS [None]
  - BONE DEBRIDEMENT [None]
  - BONE DISORDER [None]
  - HAEMORRHAGE [None]
  - OSTEONECROSIS [None]
  - PAIN [None]
  - PRIMARY SEQUESTRUM [None]
  - SEQUESTRECTOMY [None]
  - TOOTH EXTRACTION [None]
